FAERS Safety Report 11607246 (Version 3)
Quarter: 2015Q4

REPORT INFORMATION
  Report Type: Spontaneous
  Country: US (occurrence: US)
  Receive Date: 20151007
  Receipt Date: 20151027
  Transmission Date: 20160304
  Serious: No
  Sender: FDA-Public Use
  Company Number: US-PFIZER INC-2015333072

PATIENT
  Age: 80 Year
  Sex: Female
  Weight: 66 kg

DRUGS (2)
  1. XANAX [Suspect]
     Active Substance: ALPRAZOLAM
     Indication: ANXIETY
     Dosage: UNK, (LOW DOSE 0.25 OR 0.025)(EVERY OTHER DAY AND SOMETIMES ANOTHER HALF AS NEEDED
     Route: 048
  2. XANAX [Suspect]
     Active Substance: ALPRAZOLAM
     Dosage: ONE HALF OF ALPRAZOLAM 0.25MG TABLET AS NEEDED
     Route: 048
     Dates: start: 2015

REACTIONS (3)
  - Product quality issue [Not Recovered/Not Resolved]
  - Feeling abnormal [Not Recovered/Not Resolved]
  - Euphoric mood [Unknown]

NARRATIVE: CASE EVENT DATE: 2015
